FAERS Safety Report 7549282-8 (Version None)
Quarter: 2011Q2

REPORT INFORMATION
  Report Type: 
  Country: None (occurrence: None)
  Receive Date: 20110615
  Receipt Date: 20110610
  Transmission Date: 20111010
  Serious: Yes (Other)
  Sender: FDA-Public Use
  Company Number: BE-ABBOTT-11P-013-0731426-00

PATIENT
  Sex: Female

DRUGS (3)
  1. HUMIRA [Suspect]
     Indication: PSORIASIS
     Route: 058
     Dates: start: 20090526
  2. ASAFLOW [Concomitant]
     Indication: PRODUCT USED FOR UNKNOWN INDICATION
  3. ALPRAZOLAM [Concomitant]
     Indication: PRODUCT USED FOR UNKNOWN INDICATION

REACTIONS (8)
  - TONGUE NEOPLASM [None]
  - OROPHARYNGEAL PLAQUE [None]
  - EAR PAIN [None]
  - DYSPHAGIA [None]
  - OROPHARYNGEAL CANCER STAGE UNSPECIFIED [None]
  - CORONARY ARTERIAL STENT INSERTION [None]
  - LYMPHADENOPATHY [None]
  - SQUAMOUS CELL CARCINOMA [None]
